FAERS Safety Report 12119648 (Version 1)
Quarter: 2016Q1

REPORT INFORMATION
  Report Type: Spontaneous
  Country: US (occurrence: US)
  Receive Date: 20160226
  Receipt Date: 20160226
  Transmission Date: 20160526
  Serious: Yes (Other)
  Sender: FDA-Public Use
  Company Number: US-TEVA-637313USA

PATIENT
  Sex: Female

DRUGS (1)
  1. ZECUITY [Suspect]
     Active Substance: SUMATRIPTAN SUCCINATE
     Indication: MIGRAINE
     Route: 062

REACTIONS (7)
  - Sunburn [Unknown]
  - Application site erythema [Unknown]
  - Application site exfoliation [Unknown]
  - Application site discolouration [Not Recovered/Not Resolved]
  - Migraine [Unknown]
  - Application site irritation [Unknown]
  - Application site pain [Unknown]
